FAERS Safety Report 23758742 (Version 1)
Quarter: 2024Q2

REPORT INFORMATION
  Report Type: Spontaneous
  Country: US (occurrence: None)
  Receive Date: 20240418
  Receipt Date: 20240418
  Transmission Date: 20240716
  Serious: No
  Sender: FDA-Public Use
  Company Number: US-ROCHE-3382218

PATIENT
  Sex: Female
  Weight: 71.732 kg

DRUGS (1)
  1. AVASTIN [Suspect]
     Active Substance: BEVACIZUMAB
     Indication: Glioblastoma
     Route: 042
     Dates: start: 2022

REACTIONS (2)
  - Skin laceration [Not Recovered/Not Resolved]
  - Blood pressure increased [Not Recovered/Not Resolved]
